FAERS Safety Report 12606404 (Version 1)
Quarter: 2016Q3

REPORT INFORMATION
  Report Type: Spontaneous
  Country: DE (occurrence: DE)
  Receive Date: 20160729
  Receipt Date: 20160729
  Transmission Date: 20161109
  Serious: Yes (Other)
  Sender: FDA-Public Use
  Company Number: DE-SUN PHARMACEUTICAL INDUSTRIES LTD-2016RR-121222

PATIENT
  Sex: Female

DRUGS (3)
  1. CEFUROX BASICS 500 MG TABLETTEN [Suspect]
     Active Substance: CEFUROXIME
     Indication: SUICIDAL IDEATION
     Dosage: 500 MG, TID, LATENCY TO INTAKE 2.5 HOURS
     Route: 048
  2. METOCLOPRAMID MCP AL [Suspect]
     Active Substance: METOCLOPRAMIDE
     Indication: SUICIDAL IDEATION
     Dosage: 50 DF, UNK
     Route: 048
  3. IBUFLAM [Suspect]
     Active Substance: IBUPROFEN
     Indication: SUICIDAL IDEATION
     Dosage: 10 DF, UNK
     Route: 048

REACTIONS (5)
  - Somnolence [Unknown]
  - Incorrect dose administered [None]
  - Fatigue [Unknown]
  - Suicide attempt [None]
  - Tremor [Unknown]
